FAERS Safety Report 9236860 (Version 2)
Quarter: 2013Q2

REPORT INFORMATION
  Report Type: Report from Study
  Country: US (occurrence: US)
  Receive Date: 20130417
  Receipt Date: 20130516
  Transmission Date: 20140414
  Serious: Yes (Hospitalization)
  Sender: FDA-Public Use
  Company Number: US-009507513-1208USA000237

PATIENT
  Age: 50 Year
  Sex: Female
  Weight: 47.7 kg

DRUGS (12)
  1. MK-0000 (111) [Suspect]
     Dosage: UNK
  2. COPEGUS [Suspect]
     Indication: CHRONIC HEPATITIS C
     Dosage: UNK
     Route: 048
     Dates: start: 20120606
  3. COPEGUS [Suspect]
     Dosage: 800 MG, QD
     Route: 048
     Dates: start: 20120702
  4. COPEGUS [Suspect]
     Dosage: 400 MG, QD
     Route: 048
     Dates: start: 201207, end: 20120723
  5. PEGINTERFERON ALFA-2A [Suspect]
     Indication: CHRONIC HEPATITIS C
     Dosage: UNK, QW
     Route: 058
     Dates: start: 20120606
  6. PEGINTERFERON ALFA-2A [Suspect]
     Dosage: 180 MICROGRAM, UNK
     Route: 058
     Dates: end: 20120725
  7. TELAPREVIR [Suspect]
     Indication: CHRONIC HEPATITIS C
     Dosage: UNK UNK, TID
     Route: 048
     Dates: start: 20120606
  8. TELAPREVIR [Suspect]
     Dosage: 750 MG, TID
     Route: 048
     Dates: end: 20120726
  9. [THERAPY UNSPECIFIED] [Suspect]
     Indication: CHRONIC HEPATITIS C
     Dosage: UNK UNK, BID
     Route: 048
     Dates: start: 20120606, end: 20120726
  10. HYDROCHLOROTHIAZIDE [Concomitant]
     Indication: HYPERTENSION
     Dosage: UNK
     Dates: start: 2008
  11. LISINOPRIL [Concomitant]
     Indication: HYPERTENSION
     Dosage: UNK
     Dates: start: 2008
  12. IBUPROFEN [Concomitant]
     Indication: PROPHYLAXIS
     Dosage: UNK
     Dates: start: 20120606

REACTIONS (1)
  - Anaemia [Recovered/Resolved]
